FAERS Safety Report 17071623 (Version 2)
Quarter: 2021Q2

REPORT INFORMATION
  Report Type: Spontaneous
  Country: US (occurrence: US)
  Receive Date: 20191125
  Receipt Date: 20210625
  Transmission Date: 20210716
  Serious: No
  Sender: FDA-Public Use
  Company Number: US-PFIZER INC-2019505978

PATIENT
  Age: 66 Year
  Sex: Male
  Weight: 73.65 kg

DRUGS (6)
  1. SENNA?S [DOCUSATE SODIUM;SENNA ALEXANDRINA] [Concomitant]
  2. OXYCODONE [Concomitant]
     Active Substance: OXYCODONE
  3. TYLENOL [Concomitant]
     Active Substance: ACETAMINOPHEN
  4. BENADRYL [Concomitant]
     Active Substance: DIPHENHYDRAMINE HYDROCHLORIDE
  5. PROMETHAZINE ? CODEINE [CODEINE PHOSPHATE;PROMETHAZINE HYDROCHLORIDE] [Concomitant]
  6. BOSULIF [Suspect]
     Active Substance: BOSUTINIB MONOHYDRATE
     Indication: CHRONIC MYELOID LEUKAEMIA
     Dosage: 200 MG, 1X/DAY
     Route: 048
     Dates: start: 20210503

REACTIONS (4)
  - Decreased appetite [Unknown]
  - Balance disorder [Unknown]
  - Pleural effusion [Unknown]
  - Dizziness [Recovered/Resolved]
